FAERS Safety Report 13704436 (Version 1)
Quarter: 2017Q2

REPORT INFORMATION
  Report Type: Spontaneous
  Country: US (occurrence: US)
  Receive Date: 20170629
  Receipt Date: 20170629
  Transmission Date: 20170830
  Serious: No
  Sender: FDA-Public Use
  Company Number: None

PATIENT
  Age: 52 Year
  Sex: Female
  Weight: 58.5 kg

DRUGS (1)
  1. ESTRADIOL TRANSDERMAL SYSTEM [Suspect]
     Active Substance: ESTRADIOL
     Indication: MENOPAUSE
     Dosage: OTHER STRENGTH:MG;QUANTITY:8 PATCH(ES);OTHER FREQUENCY:2 TIMES PER WEEK;?
     Route: 062

REACTIONS (2)
  - Product adhesion issue [None]
  - Product quality issue [None]

NARRATIVE: CASE EVENT DATE: 20170628
